FAERS Safety Report 4384217-0 (Version None)
Quarter: 2004Q2

REPORT INFORMATION
  Report Type: 
  Country: None (occurrence: None)
  Receive Date: 20040614
  Receipt Date: 20040128
  Transmission Date: 20050107
  Serious: Yes (Other)
  Sender: FDA-Public Use
  Company Number: 2004196428US

PATIENT

DRUGS (1)
  1. ZYVOX [Suspect]
     Dosage: IV
     Route: 042
     Dates: start: 20040101

REACTIONS (1)
  - LIVER FUNCTION TEST ABNORMAL [None]
